FAERS Safety Report 6142832-8 (Version None)
Quarter: 2009Q2

REPORT INFORMATION
  Report Type: 
  Country: None (occurrence: None)
  Receive Date: 20090403
  Receipt Date: 20090324
  Transmission Date: 20091009
  Serious: Yes (Other)
  Sender: FDA-Public Use
  Company Number: JP-AMGEN-US330297

PATIENT
  Sex: Female
  Weight: 66 kg

DRUGS (13)
  1. ENBREL [Suspect]
     Indication: RHEUMATOID ARTHRITIS
     Dosage: SOLUTION FOR INJECTION: 25 MG 1 X PER 1 WEEK
     Route: 058
     Dates: start: 20060715, end: 20090108
  2. FOLIAMIN [Concomitant]
     Indication: PROPHYLAXIS
     Route: 048
     Dates: start: 20060810
  3. BONALON [Concomitant]
     Indication: OSTEOPOROSIS PROPHYLAXIS
     Route: 048
     Dates: start: 20061109
  4. ISONIAZID [Concomitant]
     Indication: ANTIBIOTIC PROPHYLAXIS
     Route: 048
     Dates: start: 20060508
  5. PYDOXAL [Concomitant]
     Indication: PROPHYLAXIS
     Route: 048
     Dates: start: 20080821
  6. TAKEPRON [Concomitant]
     Indication: GASTRIC ULCER
     Route: 048
  7. NORVASC [Concomitant]
     Indication: HYPERTENSION
     Route: 048
  8. ACECOL [Concomitant]
     Indication: HYPERTENSION
     Route: 048
  9. CARDENALIN [Concomitant]
     Indication: HYPERTENSION
     Route: 048
  10. TRIAZOLAM [Concomitant]
     Indication: INSOMNIA
     Route: 048
  11. RHEUMATREX [Concomitant]
     Indication: RHEUMATOID ARTHRITIS
     Route: 048
     Dates: start: 20020625
  12. MICARDIS [Concomitant]
     Indication: HYPERTENSION
     Route: 048
  13. CIPRALAN [Concomitant]

REACTIONS (2)
  - ATRIAL FIBRILLATION [None]
  - TACHYCARDIA PAROXYSMAL [None]
